FAERS Safety Report 8113770-6 (Version None)
Quarter: 2012Q1

REPORT INFORMATION
  Report Type: 
  Country: None (occurrence: None)
  Receive Date: 20120203
  Receipt Date: 20120201
  Transmission Date: 20120608
  Serious: Yes (Other)
  Sender: FDA-Public Use
  Company Number: US-JNJFOC-20120201747

PATIENT
  Sex: Female
  Weight: 61.24 kg

DRUGS (9)
  1. XARELTO [Suspect]
     Indication: ATRIAL FIBRILLATION
     Route: 048
     Dates: start: 20120101
  2. SYNTHROID [Concomitant]
     Indication: THYROID DISORDER
  3. BISOPROLOL [Concomitant]
     Indication: CARDIAC DISORDER
  4. LORAZEPAM [Concomitant]
     Indication: NERVOUS SYSTEM DISORDER
  5. XARELTO [Suspect]
     Route: 048
     Dates: start: 20120101, end: 20120101
  6. BUMETANIDE [Concomitant]
     Indication: FLUID RETENTION
  7. SERTRALINE HYDROCHLORIDE [Concomitant]
     Indication: DEPRESSION
  8. DIGOXIN [Concomitant]
     Indication: CARDIAC DISORDER
  9. AMIODARONE HCL [Concomitant]
     Indication: CARDIAC DISORDER

REACTIONS (4)
  - DYSPNOEA [None]
  - POOR QUALITY SLEEP [None]
  - HAEMORRHOIDAL HAEMORRHAGE [None]
  - HEADACHE [None]
